FAERS Safety Report 9367086 (Version 1)
Quarter: 2013Q2

REPORT INFORMATION
  Report Type: Spontaneous
  Country: ES (occurrence: ES)
  Receive Date: 20130625
  Receipt Date: 20130625
  Transmission Date: 20140414
  Serious: Yes (Other)
  Sender: FDA-Public Use
  Company Number: ES-JNJFOC-20130614297

PATIENT
  Age: 49 Year
  Sex: Male

DRUGS (2)
  1. COLD STOP [Suspect]
     Route: 048
  2. COLD STOP [Suspect]
     Indication: COUGH
     Dosage: 2 FIX DOSES
     Route: 048
     Dates: start: 20130408, end: 20130418

REACTIONS (1)
  - Urinary retention [Recovered/Resolved]
